FAERS Safety Report 25470659 (Version 1)
Quarter: 2025Q2

REPORT INFORMATION
  Report Type: Spontaneous
  Country: AU (occurrence: AU)
  Receive Date: 20250624
  Receipt Date: 20250624
  Transmission Date: 20250717
  Serious: Yes (Hospitalization, Other)
  Sender: BAXTER
  Company Number: AU-BAXTER-2025BAX017095

PATIENT
  Age: 23 Year
  Sex: Female

DRUGS (4)
  1. MESNA [Suspect]
     Active Substance: MESNA
     Indication: Sarcoma
     Route: 065
     Dates: start: 200006, end: 200011
  2. IFOSFAMIDE [Suspect]
     Active Substance: IFOSFAMIDE
     Indication: Sarcoma
     Route: 065
     Dates: start: 200006, end: 200011
  3. ADRIAMYCIN [Suspect]
     Active Substance: DOXORUBICIN HYDROCHLORIDE
     Indication: Sarcoma
     Route: 065
     Dates: start: 200006, end: 200011
  4. CARBOPLATIN [Suspect]
     Active Substance: CARBOPLATIN
     Indication: Sarcoma
     Route: 065
     Dates: start: 200006, end: 200011

REACTIONS (2)
  - Febrile neutropenia [Recovered/Resolved]
  - Vulval cellulitis [Recovered/Resolved]

NARRATIVE: CASE EVENT DATE: 20000801
